FAERS Safety Report 8335557-1 (Version None)
Quarter: 2012Q2

REPORT INFORMATION
  Report Type: 
  Country: None (occurrence: None)
  Receive Date: 20120503
  Receipt Date: 20120502
  Transmission Date: 20120825
  Serious: Yes (Hospitalization)
  Sender: FDA-Public Use
  Company Number: GB-AMGEN-GBRSP2012024006

PATIENT
  Age: 42 Year
  Sex: Female

DRUGS (6)
  1. EPIRUBICIN [Concomitant]
     Indication: BREAST CANCER
     Dosage: 170 MG, Q3WK
     Route: 042
     Dates: start: 20120309
  2. PALONOSETRON [Concomitant]
     Indication: NAUSEA
     Dosage: 250 MG, Q3WK
     Route: 042
     Dates: start: 20120309
  3. NEULASTA [Suspect]
     Indication: NEUTROPENIA
     Dosage: 6 MG, UNK
     Route: 058
     Dates: start: 20120331, end: 20120331
  4. APREPITANT [Concomitant]
     Indication: NAUSEA
     Dosage: 125MG+80MG, Q3WK
     Route: 042
     Dates: start: 20120309
  5. CYCLOPHOSPHAMIDE [Concomitant]
     Indication: BREAST CANCER
     Dosage: 850 MG, Q3WK
     Route: 042
     Dates: start: 20120309
  6. FLUOROURACIL [Concomitant]
     Indication: BREAST CANCER
     Dosage: 850 MG, Q3WK
     Route: 042
     Dates: start: 20120309

REACTIONS (4)
  - CHEST PAIN [None]
  - BACK PAIN [None]
  - ABDOMINAL PAIN [None]
  - DYSPNOEA [None]
